FAERS Safety Report 4748476-4 (Version None)
Quarter: 2005Q3

REPORT INFORMATION
  Report Type: 
  Country: None (occurrence: None)
  Receive Date: 20050817
  Receipt Date: 20050808
  Transmission Date: 20060218
  Serious: No
  Sender: FDA-Public Use
  Company Number: 440026K05USA

PATIENT
  Age: 46 Year
  Sex: Male

DRUGS (2)
  1. SEROSTIM [Suspect]
     Indication: OFF LABEL USE
  2. CHEMOTHERAPY (OTHER CHEMOTHERAPEUTICS) [Concomitant]

REACTIONS (3)
  - INJECTION SITE CELLULITIS [None]
  - PHARMACEUTICAL PRODUCT COMPLAINT [None]
  - SERRATIA INFECTION [None]
